FAERS Safety Report 13913170 (Version 1)
Quarter: 2017Q3

REPORT INFORMATION
  Report Type: Spontaneous
  Country: US (occurrence: US)
  Receive Date: 20170828
  Receipt Date: 20170828
  Transmission Date: 20171127
  Serious: No
  Sender: FDA-Public Use
  Company Number: US-ROCHE-1125386

PATIENT
  Sex: Female

DRUGS (2)
  1. NUTROPIN [Suspect]
     Active Substance: SOMATROPIN
     Indication: GROWTH HORMONE DEFICIENCY
     Route: 065
     Dates: start: 199810
  2. NUTROPIN [Suspect]
     Active Substance: SOMATROPIN
     Route: 065

REACTIONS (5)
  - Pruritus [Unknown]
  - Headache [Unknown]
  - Eye disorder [Unknown]
  - Fall [Unknown]
  - Erythema [Unknown]
